FAERS Safety Report 6670762-1 (Version None)
Quarter: 2010Q2

REPORT INFORMATION
  Report Type: 
  Country: None (occurrence: None)
  Receive Date: 20100406
  Receipt Date: 20100406
  Transmission Date: 20101027
  Serious: Yes (Other)
  Sender: FDA-Public Use
  Company Number: None

PATIENT
  Age: 26 Year
  Sex: Female
  Weight: 58.0604 kg

DRUGS (2)
  1. CYMBALTA [Suspect]
     Indication: DEPRESSION
     Dosage: 1 30 MG DIOSE 1 TIME PO
     Route: 048
     Dates: start: 20100323, end: 20100324
  2. CYMBALTA [Suspect]
     Indication: RHEUMATOID ARTHRITIS
     Dosage: 1 30 MG DIOSE 1 TIME PO
     Route: 048
     Dates: start: 20100323, end: 20100324

REACTIONS (7)
  - ABDOMINAL PAIN [None]
  - ABNORMAL SENSATION IN EYE [None]
  - DIARRHOEA [None]
  - DYSPEPSIA [None]
  - MIGRAINE WITH AURA [None]
  - PALPITATIONS [None]
  - VOMITING [None]
